FAERS Safety Report 11293358 (Version 1)
Quarter: 2015Q3

REPORT INFORMATION
  Report Type: Spontaneous
  Country: RU (occurrence: RU)
  Receive Date: 20150722
  Receipt Date: 20150722
  Transmission Date: 20151125
  Serious: Yes (Life-Threatening, Hospitalization)
  Sender: FDA-Public Use
  Company Number: RU-ASTRAZENECA-2015SE70708

PATIENT
  Age: 19768 Day
  Sex: Male
  Weight: 73 kg

DRUGS (14)
  1. HEPARIN [Concomitant]
     Active Substance: HEPARIN SODIUM
     Indication: ACUTE CORONARY SYNDROME
     Route: 058
     Dates: start: 20150702, end: 20150706
  2. BRILINTA [Suspect]
     Active Substance: TICAGRELOR
     Indication: ACUTE CORONARY SYNDROME
     Route: 048
     Dates: start: 20150611, end: 20150701
  3. BRILINTA [Suspect]
     Active Substance: TICAGRELOR
     Indication: ACUTE CORONARY SYNDROME
     Route: 048
     Dates: start: 20150701
  4. CARDIAC [Concomitant]
     Indication: ACUTE CORONARY SYNDROME
     Route: 048
     Dates: start: 20150701, end: 20150701
  5. BISOPROLOL [Concomitant]
     Active Substance: BISOPROLOL
     Indication: ACUTE CORONARY SYNDROME
     Route: 048
     Dates: start: 20150611, end: 20150702
  6. HEPARIN [Concomitant]
     Active Substance: HEPARIN SODIUM
     Indication: ACUTE CORONARY SYNDROME
     Route: 058
     Dates: start: 20150707, end: 20150708
  7. CARDIAC [Concomitant]
     Indication: ACUTE CORONARY SYNDROME
     Route: 048
     Dates: start: 20150611
  8. OMEZ [Concomitant]
     Active Substance: OMEPRAZOLE
     Indication: ACUTE CORONARY SYNDROME
     Route: 048
     Dates: start: 20150611
  9. HEPARIN [Concomitant]
     Active Substance: HEPARIN SODIUM
     Indication: ACUTE CORONARY SYNDROME
     Route: 041
     Dates: start: 20150701, end: 20150702
  10. ATORVASTATIN [Concomitant]
     Active Substance: ATORVASTATIN
     Indication: ACUTE CORONARY SYNDROME
     Route: 048
     Dates: start: 20150611
  11. HEPARIN [Concomitant]
     Active Substance: HEPARIN SODIUM
     Indication: ACUTE CORONARY SYNDROME
     Route: 040
     Dates: start: 20150701, end: 20150701
  12. BRILINTA [Suspect]
     Active Substance: TICAGRELOR
     Indication: ACUTE CORONARY SYNDROME
     Route: 048
     Dates: start: 20150701, end: 20150701
  13. ENALAPRIL [Concomitant]
     Active Substance: ENALAPRIL
     Indication: ACUTE CORONARY SYNDROME
     Route: 048
     Dates: start: 20150611
  14. PHENAZEPAM [Concomitant]
     Active Substance: PHENAZEPAM
     Indication: ACUTE CORONARY SYNDROME
     Route: 048
     Dates: start: 20150701, end: 20150701

REACTIONS (2)
  - Acute myocardial infarction [Recovered/Resolved with Sequelae]
  - Stress [Unknown]

NARRATIVE: CASE EVENT DATE: 20150627
